FAERS Safety Report 20752591 (Version 1)
Quarter: 2022Q2

REPORT INFORMATION
  Report Type: Spontaneous
  Country: US (occurrence: None)
  Receive Date: 20220426
  Receipt Date: 20220426
  Transmission Date: 20220721
  Serious: No
  Sender: FDA-Public Use
  Company Number: US-ROCHE-2834812

PATIENT
  Sex: Male

DRUGS (1)
  1. ESBRIET [Suspect]
     Active Substance: PIRFENIDONE
     Indication: Interstitial lung disease
     Dosage: TAKE 1 TABLET BY MOUTH 3 TIMES DAILY FOR 1 WEEK, THEN 2 TABLET 3 TIMES DAILY FOR 1 WEEK, THEN 3 TABL
     Route: 048

REACTIONS (2)
  - Treatment noncompliance [Unknown]
  - No adverse event [Unknown]
